FAERS Safety Report 21394561 (Version 2)
Quarter: 2022Q4

REPORT INFORMATION
  Report Type: Spontaneous
  Country: ES (occurrence: ES)
  Receive Date: 20220930
  Receipt Date: 20221021
  Transmission Date: 20230113
  Serious: Yes (Other)
  Sender: FDA-Public Use
  Company Number: ES-NOVOPROD-957019

PATIENT
  Sex: Female

DRUGS (2)
  1. FIASP [Suspect]
     Active Substance: INSULIN ASPART
     Dosage: UNK
  2. FIASP [Suspect]
     Active Substance: INSULIN ASPART
     Indication: Product used for unknown indication
     Dosage: UNK

REACTIONS (6)
  - Premature delivery [Unknown]
  - Diabetes mellitus inadequate control [Unknown]
  - Product deposit [Unknown]
  - Poor quality product administered [Unknown]
  - Maternal exposure during pregnancy [Recovered/Resolved]
  - Product contamination with body fluid [Unknown]

NARRATIVE: CASE EVENT DATE: 20220701
